FAERS Safety Report 8806280 (Version 2)
Quarter: 2012Q4

REPORT INFORMATION
  Report Type: Spontaneous
  Country: JP (occurrence: None)
  Receive Date: 20120918
  Receipt Date: 20121011
  Transmission Date: 20130627
  Serious: Yes (Other)
  Sender: FDA-Public Use
  Company Number: DSA_59643_2012

PATIENT
  Age: 66 Year
  Sex: Male

DRUGS (2)
  1. DILTIAZEM HYDROCHLORIDE [Suspect]
     Indication: HYPERTENSION
     Route: 041
     Dates: start: 20110210, end: 20110210
  2. DILTIAZEM HYDROCHLORIDE [Suspect]
     Indication: HYPERTENSION
     Route: 041
     Dates: start: 20110307, end: 20110307

REACTIONS (9)
  - Hyperkalaemia [None]
  - Nodal rhythm [None]
  - Sick sinus syndrome [None]
  - Loss of consciousness [None]
  - Blood pressure increased [None]
  - Sinus tachycardia [None]
  - Influenza like illness [None]
  - Pneumonia aspiration [None]
  - Sinus bradycardia [None]
